FAERS Safety Report 24159072 (Version 2)
Quarter: 2024Q3

REPORT INFORMATION
  Report Type: Spontaneous
  Country: JP (occurrence: JP)
  Receive Date: 20240731
  Receipt Date: 20240812
  Transmission Date: 20241016
  Serious: Yes (Life-Threatening, Hospitalization)
  Sender: TEVA
  Company Number: JP-TEVA-VS-3224786

PATIENT
  Age: 47 Year
  Sex: Female

DRUGS (9)
  1. NIFEDIPINE [Suspect]
     Active Substance: NIFEDIPINE
     Indication: Angina pectoris
     Route: 048
  2. NITROGLYCERIN [Concomitant]
     Active Substance: NITROGLYCERIN
     Indication: Angina pectoris
     Route: 042
  3. DILTIAZEM [Concomitant]
     Active Substance: DILTIAZEM
     Indication: Angina pectoris
     Route: 048
  4. BENIDIPINE [Concomitant]
     Active Substance: BENIDIPINE
     Indication: Angina pectoris
     Route: 048
  5. NICORANDIL [Suspect]
     Active Substance: NICORANDIL
     Indication: Angina pectoris
     Route: 048
  6. ZOLPIDEM [Concomitant]
     Active Substance: ZOLPIDEM TARTRATE
     Indication: Angina pectoris
     Route: 048
  7. ETIZOLAM [Concomitant]
     Active Substance: ETIZOLAM
     Indication: Angina pectoris
     Route: 048
  8. BEPOTASTINE BESYLATE [Concomitant]
     Active Substance: BEPOTASTINE BESYLATE
     Indication: Angina pectoris
     Route: 048
  9. LEVOCETIRIZINE [Concomitant]
     Active Substance: LEVOCETIRIZINE
     Indication: Angina pectoris
     Route: 048

REACTIONS (1)
  - Rash [Unknown]
